FAERS Safety Report 9699988 (Version 1)
Quarter: 2013Q4

REPORT INFORMATION
  Report Type: Spontaneous
  Country: US (occurrence: US)
  Receive Date: 20131121
  Receipt Date: 20131121
  Transmission Date: 20140711
  Serious: No
  Sender: FDA-Public Use
  Company Number: US-BIOGENIDEC-2013BI109093

PATIENT
  Age: 35 Year
  Sex: Female

DRUGS (1)
  1. TYSABRI [Suspect]
     Indication: MULTIPLE SCLEROSIS
     Route: 042

REACTIONS (7)
  - Weight decreased [Not Recovered/Not Resolved]
  - Dysgeusia [Unknown]
  - Anaemia [Unknown]
  - Dehydration [Unknown]
  - Nausea [Unknown]
  - Multiple sclerosis relapse [Unknown]
  - Flushing [Unknown]
